FAERS Safety Report 10822655 (Version 1)
Quarter: 2015Q1

REPORT INFORMATION
  Report Type: Spontaneous
  Country: JP (occurrence: None)
  Receive Date: 20150213
  Receipt Date: 20150213
  Transmission Date: 20150721
  Serious: Yes (Death, Other)
  Sender: FDA-Public Use
  Company Number: 2015COV00030

PATIENT
  Age: 68 Year
  Sex: Male

DRUGS (1)
  1. RILUTEK [Suspect]
     Active Substance: RILUZOLE
     Indication: AMYOTROPHIC LATERAL SCLEROSIS
     Route: 048

REACTIONS (2)
  - Acute respiratory distress syndrome [None]
  - Pneumonia [None]
